FAERS Safety Report 4706374-6 (Version None)
Quarter: 2005Q3

REPORT INFORMATION
  Report Type: 
  Country: None (occurrence: None)
  Receive Date: 20050705
  Receipt Date: 20050622
  Transmission Date: 20060218
  Serious: Yes (Hospitalization)
  Sender: FDA-Public Use
  Company Number: FR-BRISTOL-MYERS SQUIBB COMPANY-13015425

PATIENT
  Age: 49 Year
  Sex: Female
  Weight: 54 kg

DRUGS (4)
  1. REYATAZ [Suspect]
     Dosage: THERAPY STOPPED ON 18-JAN-2005;UNSPECIFIED DATE-DOSAGE CHANGED TO 150 MG 2/DAY, STOPPED, RE-STARTED
     Route: 048
     Dates: start: 20041125
  2. VIDEX [Concomitant]
  3. NORVIR [Concomitant]
  4. EPIVIR [Concomitant]

REACTIONS (3)
  - CONJUNCTIVITIS [None]
  - COUGH [None]
  - RASH [None]
